FAERS Safety Report 5110777-8 (Version None)
Quarter: 2006Q3

REPORT INFORMATION
  Report Type: 
  Country: None (occurrence: None)
  Receive Date: 20060919
  Receipt Date: 20060906
  Transmission Date: 20061208
  Serious: Yes (Hospitalization)
  Sender: FDA-Public Use
  Company Number: T200600983

PATIENT
  Age: 74 Year
  Sex: Male

DRUGS (5)
  1. METHADONE HYDROCHLORIDE [Suspect]
     Dosage: 10 MG, SINGLE, ORAL
     Route: 048
     Dates: start: 20060829, end: 20060829
  2. METHADONE HYDROCHLORIDE (METHADONE HYDROCHLORIDE) 10MG [Suspect]
     Indication: PAIN
     Dosage: 50 MG (5 X 10 MG TABLETS), BID, ORAL
     Route: 048
     Dates: start: 20040101
  3. ACTOS /01460201/ (PIOGLITAZONE) [Concomitant]
  4. FLOMAX /00889901/ (MORNIFLUMATE) [Concomitant]
  5. ACIPHEX [Concomitant]

REACTIONS (2)
  - CONVULSION [None]
  - PHARMACEUTICAL PRODUCT COMPLAINT [None]
